FAERS Safety Report 5642773-6 (Version None)
Quarter: 2008Q1

REPORT INFORMATION
  Report Type: 
  Country: None (occurrence: None)
  Receive Date: 20080228
  Receipt Date: 20080219
  Transmission Date: 20080703
  Serious: Yes (Hospitalization, Other)
  Sender: FDA-Public Use
  Company Number: US-AMGEN-QUU251506

PATIENT
  Sex: Female
  Weight: 69 kg

DRUGS (14)
  1. ENBREL [Suspect]
     Indication: RHEUMATOID ARTHRITIS
     Route: 058
     Dates: start: 20060301
  2. METHOTREXATE [Concomitant]
     Dates: start: 20060301
  3. SYNTHROID [Concomitant]
  4. PREMARIN [Concomitant]
  5. CELEBREX [Concomitant]
  6. METANX [Concomitant]
     Dates: start: 20060301
  7. ACIPHEX [Concomitant]
  8. ALLEGRA [Concomitant]
  9. NASONEX [Concomitant]
  10. CENTRUM SILVER [Concomitant]
  11. GLUCOSAMINE [Concomitant]
  12. CHONDROITIN [Concomitant]
  13. CALCIUM [Concomitant]
  14. VITAMIN E [Concomitant]

REACTIONS (21)
  - ARTHRALGIA [None]
  - DRY EYE [None]
  - DRY MOUTH [None]
  - DYSPEPSIA [None]
  - FATIGUE [None]
  - HAEMORRHOIDS [None]
  - HYPOAESTHESIA [None]
  - INCONTINENCE [None]
  - INJECTION SITE ERYTHEMA [None]
  - INJECTION SITE HAEMORRHAGE [None]
  - INJECTION SITE ULCER [None]
  - INJECTION SITE VESICLES [None]
  - JOINT SWELLING [None]
  - MEMORY IMPAIRMENT [None]
  - PAIN [None]
  - PARAESTHESIA [None]
  - RHEUMATOID ARTHRITIS [None]
  - SINUSITIS [None]
  - SINUSITIS FUNGAL [None]
  - SYNOVITIS [None]
  - UPPER RESPIRATORY TRACT INFECTION [None]
